FAERS Safety Report 15554395 (Version 4)
Quarter: 2025Q3

REPORT INFORMATION
  Report Type: Spontaneous
  Country: EU (occurrence: EU)
  Receive Date: 20181026
  Receipt Date: 20250728
  Transmission Date: 20251021
  Serious: Yes (Life-Threatening, Hospitalization, Other)
  Sender: AUROBINDO
  Company Number: EU-AUROBINDO-AUR-APL-2018-052255

PATIENT
  Age: 20 Year
  Sex: Male

DRUGS (13)
  1. CARVEDILOL [Suspect]
     Active Substance: CARVEDILOL
     Indication: Embolism
     Dosage: UNINTERRUPTED IV 24-HOUR/PER/DAY
     Route: 042
  2. CARVEDILOL [Suspect]
     Active Substance: CARVEDILOL
     Indication: Cerebrovascular accident
  3. CARVEDILOL [Suspect]
     Active Substance: CARVEDILOL
     Indication: Atrial fibrillation
  4. DEFERIPRONE [Suspect]
     Active Substance: DEFERIPRONE
     Indication: Cardiac failure
     Route: 048
  5. DEFERIPRONE [Suspect]
     Active Substance: DEFERIPRONE
     Indication: Iron overload
     Route: 048
  6. DEFERIPRONE [Suspect]
     Active Substance: DEFERIPRONE
     Indication: Salvage therapy
  7. DEFERIPRONE [Suspect]
     Active Substance: DEFERIPRONE
     Indication: Chelation therapy
  8. DEFEROXAMINE [Suspect]
     Active Substance: DEFEROXAMINE MESYLATE
     Indication: Iron overload
     Route: 042
  9. DEFEROXAMINE [Suspect]
     Active Substance: DEFEROXAMINE MESYLATE
     Indication: Cardiac failure
  10. DEFEROXAMINE [Suspect]
     Active Substance: DEFEROXAMINE MESYLATE
     Indication: Chelation therapy
  11. WARFARIN SODIUM [Suspect]
     Active Substance: WARFARIN SODIUM
     Indication: Embolism
     Route: 065
  12. WARFARIN SODIUM [Suspect]
     Active Substance: WARFARIN SODIUM
     Indication: Cerebrovascular accident
  13. WARFARIN SODIUM [Suspect]
     Active Substance: WARFARIN SODIUM
     Indication: Atrial fibrillation

REACTIONS (20)
  - Depressed level of consciousness [Recovered/Resolved]
  - Gamma-glutamyltransferase increased [Not Recovered/Not Resolved]
  - Hypokalaemia [Recovered/Resolved]
  - Hepatomegaly [Recovering/Resolving]
  - Glycosuria [Recovered/Resolved]
  - Jaundice [Recovering/Resolving]
  - Model for end stage liver disease score abnormal [Recovering/Resolving]
  - Coagulopathy [Recovered/Resolved]
  - Asthenia [Recovering/Resolving]
  - Pleural effusion [Recovering/Resolving]
  - Influenza like illness [Recovering/Resolving]
  - Condition aggravated [Recovering/Resolving]
  - Hypophosphataemia [Recovered/Resolved]
  - Proteinuria [Recovered/Resolved]
  - Beta 2 microglobulin urine increased [Recovered/Resolved]
  - Drug-induced liver injury [Recovered/Resolved]
  - Dehydration [Recovering/Resolving]
  - Breath sounds abnormal [Recovering/Resolving]
  - Renal tubular disorder [Recovered/Resolved]
  - Electrolyte imbalance [Recovered/Resolved]
